FAERS Safety Report 9555710 (Version 1)
Quarter: 2013Q3

REPORT INFORMATION
  Report Type: Spontaneous
  Country: US (occurrence: US)
  Receive Date: 20130926
  Receipt Date: 20130926
  Transmission Date: 20140515
  Serious: Yes (Hospitalization)
  Sender: FDA-Public Use
  Company Number: PHEH2013US020040

PATIENT
  Sex: Female

DRUGS (10)
  1. RECLAST [Suspect]
     Dosage: UNK UKN, UNK
     Route: 042
  2. RECLAST [Suspect]
     Dosage: UNK UKN, UNK
     Route: 042
     Dates: start: 20130913
  3. METFORMIN [Concomitant]
     Dosage: UNK UKN, UNK
  4. METOPROLOL [Concomitant]
     Dosage: UNK UKN, UNK
  5. HYDROCHLOROTHIAZIDE [Concomitant]
     Dosage: UNK UKN, UNK
  6. OMEPRAZOLE [Concomitant]
     Dosage: UNK UKN, UNK
  7. GLIPIZIDE [Concomitant]
     Dosage: UNK UKN, UNK
  8. MONTELUKAST [Concomitant]
     Dosage: UNK UKN, UNK
  9. ATORVASTATIN [Concomitant]
     Dosage: UNK UKN, UNK
  10. DICYCLOMINE [Concomitant]
     Dosage: UNK UKN, UNK

REACTIONS (14)
  - Balance disorder [Unknown]
  - Gait disturbance [Unknown]
  - Infection [Unknown]
  - Dehydration [Unknown]
  - Weight decreased [Unknown]
  - Flatulence [Unknown]
  - Hypophagia [Unknown]
  - Dry mouth [Unknown]
  - Diarrhoea [Unknown]
  - Vomiting [Unknown]
  - Back pain [Unknown]
  - Musculoskeletal pain [Unknown]
  - Abdominal pain upper [Unknown]
  - Nausea [Unknown]
